FAERS Safety Report 5389890-6 (Version None)
Quarter: 2007Q3

REPORT INFORMATION
  Report Type: 
  Country: None (occurrence: None)
  Receive Date: 20070713
  Receipt Date: 20070702
  Transmission Date: 20080115
  Serious: Yes (Other)
  Sender: FDA-Public Use
  Company Number: OMNQ-NO-0706S-0434

PATIENT
  Age: 40 Year
  Sex: Male

DRUGS (4)
  1. OMNIPAQUE 140 [Suspect]
     Indication: ANGINA UNSTABLE
     Dosage: 130 ML, SINGLE DOSE, CORONARY ANGIOPLASTY
     Dates: start: 20070605, end: 20070605
  2. OMNIPAQUE 140 [Suspect]
     Indication: CATHETERISATION CARDIAC
     Dosage: 130 ML, SINGLE DOSE, CORONARY ANGIOPLASTY
     Dates: start: 20070605, end: 20070605
  3. OMNIPAQUE 140 [Suspect]
     Indication: CORONARY ANGIOPLASTY
     Dosage: 130 ML, SINGLE DOSE, CORONARY ANGIOPLASTY
     Dates: start: 20070605, end: 20070605
  4. ISOSORBIDE DINITRATE [Concomitant]

REACTIONS (7)
  - AMNESIA [None]
  - BRADYCARDIA [None]
  - CORONARY ARTERY OCCLUSION [None]
  - DISORIENTATION [None]
  - HYPOTENSION [None]
  - SYNCOPE VASOVAGAL [None]
  - VISUAL ACUITY REDUCED [None]
